FAERS Safety Report 19883709 (Version 2)
Quarter: 2021Q4

REPORT INFORMATION
  Report Type: Other
  Country: LU (occurrence: LU)
  Receive Date: 20210927
  Receipt Date: 20211130
  Transmission Date: 20220303
  Serious: Yes (Hospitalization, Other)
  Sender: FDA-Public Use
  Company Number: None

PATIENT

DRUGS (1)
  1. ORGARAN [Suspect]
     Active Substance: DANAPAROID SODIUM
     Indication: Thrombosis prophylaxis
     Dosage: 1 DOSAGE FORM, 1 DOSE 12 HOURS
     Route: 058
     Dates: start: 20210817, end: 20210821

REACTIONS (2)
  - Erythema [Recovering/Resolving]
  - Cellulitis [Recovering/Resolving]

NARRATIVE: CASE EVENT DATE: 20210821
